FAERS Safety Report 4929569-5 (Version None)
Quarter: 2006Q1

REPORT INFORMATION
  Report Type: 
  Country: None (occurrence: None)
  Receive Date: 20060223
  Receipt Date: 20060223
  Transmission Date: 20060701
  Serious: Yes (Hospitalization)
  Sender: FDA-Public Use
  Company Number: STA-AE-06-005

PATIENT
  Age: 41 Year
  Sex: Male

DRUGS (3)
  1. LORAZEPAM [Suspect]
     Indication: SEDATION
     Dosage: 11 GM IV OVER 25 DAYS
     Route: 042
  2. SULFAMETHOXAZOLE + TRIMETHOPRIM [Concomitant]
  3. PREDNISONE [Concomitant]

REACTIONS (6)
  - ANION GAP INCREASED [None]
  - BLOOD BICARBONATE DECREASED [None]
  - BLOOD CREATININE INCREASED [None]
  - BLOOD OSMOLARITY INCREASED [None]
  - HYPOTENSION [None]
  - THERAPY NON-RESPONDER [None]
